FAERS Safety Report 24747947 (Version 1)
Quarter: 2024Q4

REPORT INFORMATION
  Report Type: Spontaneous
  Country: US (occurrence: US)
  Receive Date: 20241218
  Receipt Date: 20241218
  Transmission Date: 20250114
  Serious: No
  Sender: PFIZER
  Company Number: US-PFIZER INC-PV202400108124

PATIENT
  Age: 56 Year
  Sex: Female

DRUGS (1)
  1. TUKYSA [Suspect]
     Active Substance: TUCATINIB
     Dosage: 300 MG, 2X/DAY (2 TABLETS OF 150MG TWICE DAILY)

REACTIONS (3)
  - Neoplasm progression [Unknown]
  - Confusional state [Unknown]
  - Aphasia [Unknown]
